FAERS Safety Report 8261073-1 (Version None)
Quarter: 2012Q2

REPORT INFORMATION
  Report Type: 
  Country: None (occurrence: None)
  Receive Date: 20120405
  Receipt Date: 20120328
  Transmission Date: 20120825
  Serious: Yes (Other)
  Sender: FDA-Public Use
  Company Number: PHHY2012BR027971

PATIENT
  Sex: Female

DRUGS (2)
  1. NORTRIPTYLINE HCL [Suspect]
  2. FORMOTEROL FUMARATE [Suspect]

REACTIONS (3)
  - DRY MOUTH [None]
  - LIP DRY [None]
  - AMNESIA [None]
